FAERS Safety Report 20682903 (Version 1)
Quarter: 2022Q2

REPORT INFORMATION
  Report Type: Spontaneous
  Country: AU (occurrence: AU)
  Receive Date: 20220407
  Receipt Date: 20220407
  Transmission Date: 20220720
  Serious: Yes (Other)
  Sender: FDA-Public Use
  Company Number: AU-ALKEM LABORATORIES LIMITED-AU-ALKEM-2022-02722

PATIENT
  Sex: Female

DRUGS (1)
  1. GABAPENTIN [Suspect]
     Active Substance: GABAPENTIN
     Indication: Product used for unknown indication
     Dosage: UNK
     Route: 065

REACTIONS (19)
  - Coarctation of the aorta [Unknown]
  - Epidermal naevus syndrome [Unknown]
  - Fibrous dysplasia of bone [Unknown]
  - Renal hamartoma [Unknown]
  - Protein S deficiency [Unknown]
  - Spinal cord lipoma [Unknown]
  - Constipation [Unknown]
  - Encopresis [Unknown]
  - Epidermal naevus [Unknown]
  - Hypertrophy [Unknown]
  - K-ras gene mutation [Unknown]
  - Lymphatic disorder [Unknown]
  - Neuralgia [Unknown]
  - Paraesthesia [Unknown]
  - Peripheral nerve lesion [Unknown]
  - Radiculopathy [Unknown]
  - Scoliosis [Unknown]
  - Sebaceous naevus [Unknown]
  - Tongue disorder [Unknown]
